FAERS Safety Report 21847369 (Version 4)
Quarter: 2025Q3

REPORT INFORMATION
  Report Type: Spontaneous
  Country: US (occurrence: US)
  Receive Date: 20230111
  Receipt Date: 20250915
  Transmission Date: 20251021
  Serious: Yes (Hospitalization, Other)
  Sender: ACCORD
  Company Number: US-MLMSERVICE-20221226-4002781-1

PATIENT
  Age: 64 Year
  Sex: Male

DRUGS (4)
  1. MYCOPHENOLATE MOFETIL [Suspect]
     Active Substance: MYCOPHENOLATE MOFETIL
     Indication: Immunosuppressant drug therapy
  2. TACROLIMUS [Suspect]
     Active Substance: TACROLIMUS
     Indication: Immunosuppressant drug therapy
  3. TACROLIMUS [Suspect]
     Active Substance: TACROLIMUS
     Indication: Immunosuppressant drug therapy
     Dosage: 3 MG DURING THE DAY AND 3.5 MG AT NIGHT
  4. MYCOPHENOLATE MOFETIL [Suspect]
     Active Substance: MYCOPHENOLATE MOFETIL
     Indication: Immunosuppressant drug therapy

REACTIONS (7)
  - Herpes zoster oticus [Recovering/Resolving]
  - Meningoencephalitis viral [Recovered/Resolved]
  - Gradenigo^s syndrome [Recovered/Resolved]
  - Staphylococcal infection [Recovered/Resolved]
  - Varicella zoster virus infection [Recovered/Resolved]
  - Sinus tachycardia [Unknown]
  - Otitis externa [Recovered/Resolved]
